FAERS Safety Report 25871248 (Version 1)
Quarter: 2025Q4

REPORT INFORMATION
  Report Type: Spontaneous
  Country: US (occurrence: None)
  Receive Date: 20251001
  Receipt Date: 20251001
  Transmission Date: 20260118
  Serious: Yes (Life-Threatening, Other)
  Sender: FDA-CTU
  Company Number: None

PATIENT
  Age: 36 Year
  Sex: Male
  Weight: 114.76 kg

DRUGS (1)
  1. HISTRELIN [Suspect]
     Active Substance: HISTRELIN
     Indication: Toxicity to various agents

REACTIONS (8)
  - Myalgia [None]
  - Arthralgia [None]
  - Tendon pain [None]
  - Eye haemorrhage [None]
  - Blood luteinising hormone decreased [None]
  - Blood follicle stimulating hormone decreased [None]
  - Blood oestrogen increased [None]
  - Gynaecomastia [None]

NARRATIVE: CASE EVENT DATE: 20220804
